FAERS Safety Report 9643561 (Version 1)
Quarter: 2013Q4

REPORT INFORMATION
  Report Type: Spontaneous
  Country: US (occurrence: US)
  Receive Date: 20131024
  Receipt Date: 20131024
  Transmission Date: 20140711
  Serious: Yes (Other)
  Sender: FDA-Public Use
  Company Number: US-ROXANE LABORATORIES, INC.-2013-RO-01713RO

PATIENT
  Age: 61 Year
  Sex: Male
  Weight: 116 kg

DRUGS (11)
  1. LOSARTAN POTASSIUM USP [Suspect]
     Indication: HYPERTENSION
     Dosage: 100 MG
  2. LOSARTAN POTASSIUM USP [Suspect]
     Dosage: 50 MG
  3. VALSARTAN [Suspect]
     Indication: HYPERTENSION
     Dosage: 160 MG
  4. ASPIRIN [Concomitant]
     Dosage: 325 MG
  5. METFORMIN [Concomitant]
     Dosage: 2000 MG
  6. ATENOLOL [Concomitant]
     Dosage: 75 MG
  7. SIMVASTATIN [Concomitant]
     Dosage: 20 MG
  8. RANITIDINE [Concomitant]
     Dosage: 300 MG
  9. NOVOLIN [Concomitant]
     Route: 058
  10. TEMAZEPAM [Concomitant]
  11. MULTIVITAMIN [Concomitant]

REACTIONS (2)
  - Thrombocytopenia [Recovered/Resolved]
  - Blood pressure increased [Unknown]
